FAERS Safety Report 5779801-3 (Version None)
Quarter: 2008Q2

REPORT INFORMATION
  Report Type: 
  Country: None (occurrence: None)
  Receive Date: 20080618
  Receipt Date: 20080610
  Transmission Date: 20081010
  Serious: Yes (Hospitalization, Other)
  Sender: FDA-Public Use
  Company Number: 2008BI009710

PATIENT
  Age: 37 Year
  Sex: Female
  Weight: 45 kg

DRUGS (11)
  1. TYSABRI [Suspect]
     Indication: MULTIPLE SCLEROSIS
     Dosage: 300 MG; QM; IV
     Route: 042
     Dates: start: 20070924, end: 20080319
  2. IMUREL [Concomitant]
  3. BETAFERON [Concomitant]
  4. AVONEX [Concomitant]
  5. BETAFERON [Concomitant]
  6. MITHOXANTRONE [Concomitant]
  7. BETAFERON [Concomitant]
  8. COPAXONE [Concomitant]
  9. CORTICOSTEROIDS [Concomitant]
  10. CORTICOSTEROIDS [Concomitant]
  11. CORTICOSTEROIDS [Concomitant]

REACTIONS (15)
  - CEREBELLAR SYNDROME [None]
  - CONFUSIONAL STATE [None]
  - DEPRESSION [None]
  - DISORIENTATION [None]
  - HAEMATOCHEZIA [None]
  - HALLUCINATION, VISUAL [None]
  - HERPES ZOSTER [None]
  - HYPOAESTHESIA [None]
  - LOSS OF PROPRIOCEPTION [None]
  - MENINGORADICULITIS [None]
  - OESOPHAGEAL ULCER [None]
  - OESOPHAGITIS [None]
  - PYRAMIDAL TRACT SYNDROME [None]
  - SUICIDE ATTEMPT [None]
  - VARICELLA [None]
